FAERS Safety Report 5820355-0 (Version None)
Quarter: 2008Q3

REPORT INFORMATION
  Report Type: 
  Country: None (occurrence: None)
  Receive Date: 20080724
  Receipt Date: 20070716
  Transmission Date: 20090109
  Serious: No
  Sender: FDA-Public Use
  Company Number: A0656605A

PATIENT
  Age: 68 Year
  Sex: Female
  Weight: 69.5 kg

DRUGS (3)
  1. AVANDIA [Suspect]
     Route: 048
  2. CADUET [Concomitant]
  3. PROTONIX [Concomitant]

REACTIONS (6)
  - ADVERSE EVENT [None]
  - BACK PAIN [None]
  - COUGH [None]
  - JOINT SWELLING [None]
  - MUSCLE SPASMS [None]
  - WEIGHT INCREASED [None]
